FAERS Safety Report 22276341 (Version 1)
Quarter: 2023Q2

REPORT INFORMATION
  Report Type: Report from Study
  Country: US (occurrence: US)
  Receive Date: 20230503
  Receipt Date: 20230503
  Transmission Date: 20230721
  Serious: Yes (Hospitalization)
  Sender: FDA-Public Use
  Company Number: US-ABBVIE-4747764

PATIENT
  Sex: Male

DRUGS (1)
  1. HUMIRA [Suspect]
     Active Substance: ADALIMUMAB
     Indication: Crohn^s disease
     Route: 058
     Dates: start: 20220805

REACTIONS (6)
  - Heart rate decreased [Unknown]
  - Gastric disorder [Unknown]
  - Dyspepsia [Unknown]
  - Faeces soft [Unknown]
  - Dyspnoea [Unknown]
  - Joint swelling [Unknown]
